FAERS Safety Report 10921640 (Version 2)
Quarter: 2015Q1

REPORT INFORMATION
  Report Type: Spontaneous
  Country: US (occurrence: US)
  Receive Date: 20150317
  Receipt Date: 20150319
  Transmission Date: 20150721
  Serious: Yes (Other)
  Sender: FDA-Public Use
  Company Number: US-ABBVIE-15P-163-1358092-00

PATIENT
  Sex: Male
  Weight: 79.45 kg

DRUGS (1)
  1. SYNTHROID [Suspect]
     Active Substance: LEVOTHYROXINE SODIUM
     Indication: HYPOTHYROIDISM
     Route: 065
     Dates: start: 20140919

REACTIONS (8)
  - Mental impairment [Recovered/Resolved]
  - Vertigo [Recovered/Resolved]
  - General physical health deterioration [Recovered/Resolved]
  - Local swelling [Recovered/Resolved]
  - Hydrocephalus [Recovered/Resolved]
  - Food allergy [Recovered/Resolved]
  - Diarrhoea [Recovered/Resolved]
  - Coeliac disease [Recovered/Resolved]

NARRATIVE: CASE EVENT DATE: 2014
